FAERS Safety Report 7961310-4 (Version None)
Quarter: 2011Q4

REPORT INFORMATION
  Report Type: 
  Country: None (occurrence: None)
  Receive Date: 20111207
  Receipt Date: 20111128
  Transmission Date: 20120403
  Serious: Yes (Life-Threatening)
  Sender: FDA-Public Use
  Company Number: NO-SANOFI-AVENTIS-2011SA071655

PATIENT
  Age: 68 Year
  Sex: Male

DRUGS (4)
  1. METOPROLOL SUCCINATE [Concomitant]
     Route: 048
     Dates: start: 20050101
  2. PLAVIX [Suspect]
     Indication: PLATELET AGGREGATION INHIBITION
     Route: 048
     Dates: start: 20110628, end: 20111016
  3. ZOCOR [Concomitant]
     Route: 048
     Dates: start: 20040101
  4. ASPIRIN [Concomitant]
     Indication: PLATELET AGGREGATION INHIBITION
     Route: 048
     Dates: start: 20030101

REACTIONS (3)
  - DEPRESSIVE SYMPTOM [None]
  - PERSONALITY CHANGE [None]
  - SUICIDE ATTEMPT [None]
